FAERS Safety Report 16760834 (Version 1)
Quarter: 2019Q3

REPORT INFORMATION
  Report Type: Spontaneous
  Country: CN (occurrence: CN)
  Receive Date: 20190830
  Receipt Date: 20190830
  Transmission Date: 20191005
  Serious: Yes (Hospitalization, Other)
  Sender: FDA-Public Use
  Company Number: CN-BAXTER-2019BAX017242

PATIENT
  Age: 71 Year
  Sex: Male

DRUGS (4)
  1. LUBEI (NEDAPLATIN) [Suspect]
     Active Substance: NEDAPLATIN
     Indication: GINGIVAL CANCER
     Dosage: FIRST COURSE,
     Route: 041
     Dates: start: 20190507, end: 201905
  2. 0.9% SODIUM CHLORIDE INJECTION [Suspect]
     Active Substance: SODIUM CHLORIDE
     Indication: GINGIVAL CANCER
     Route: 041
     Dates: start: 20190528, end: 20190528
  3. 0.9% SODIUM CHLORIDE INJECTION [Suspect]
     Active Substance: SODIUM CHLORIDE
     Indication: CANCER SURGERY
  4. LUBEI (NEDAPLATIN) [Suspect]
     Active Substance: NEDAPLATIN
     Indication: CANCER SURGERY
     Dosage: SECOND COURSE
     Route: 041
     Dates: start: 20190528, end: 20190528

REACTIONS (5)
  - Chills [Unknown]
  - Chest discomfort [Recovering/Resolving]
  - Temperature intolerance [Unknown]
  - Tachypnoea [Recovering/Resolving]
  - Flushing [Recovering/Resolving]

NARRATIVE: CASE EVENT DATE: 20190528
